FAERS Safety Report 6275007-2 (Version None)
Quarter: 2009Q3

REPORT INFORMATION
  Report Type: 
  Country: None (occurrence: None)
  Receive Date: 20090717
  Receipt Date: 20090702
  Transmission Date: 20100115
  Serious: Yes (Hospitalization)
  Sender: FDA-Public Use
  Company Number: 000401

PATIENT
  Sex: Female
  Weight: 64 kg

DRUGS (6)
  1. LACOSAMIDE [Suspect]
     Dosage: (50 MG BID), (100 MG BID), (200 MG BID)
     Dates: start: 20090127, end: 20090202
  2. LACOSAMIDE [Suspect]
     Dosage: (50 MG BID), (100 MG BID), (200 MG BID)
     Dates: start: 20090203, end: 20090205
  3. LACOSAMIDE [Suspect]
     Dosage: (50 MG BID), (100 MG BID), (200 MG BID)
     Dates: start: 20090206
  4. DESITIN /00263601/ [Concomitant]
  5. APYDAN /00596701/ [Concomitant]
  6. LAMOTRIGINE [Concomitant]

REACTIONS (4)
  - AGITATION [None]
  - BALANCE DISORDER [None]
  - SOMATISATION DISORDER [None]
  - VISUAL IMPAIRMENT [None]
